FAERS Safety Report 8962267 (Version 2)
Quarter: 2013Q1

REPORT INFORMATION
  Report Type: Spontaneous
  Country: US (occurrence: US)
  Receive Date: 20121212
  Receipt Date: 20130123
  Transmission Date: 20140127
  Serious: Yes (Other)
  Sender: FDA-Public Use
  Company Number: US-PFIZER INC-2012271720

PATIENT
  Age: 47 Year
  Sex: Female
  Weight: 70.3 kg

DRUGS (4)
  1. LYRICA [Suspect]
     Indication: FIBROMYALGIA
     Dosage: 75 MG, 2X/DAY
     Dates: start: 20120523
  2. NORCO [Concomitant]
     Indication: PAIN
     Dosage: 10 MG, AS NEEDED
  3. ESTROGENS CONJUGATED [Concomitant]
     Indication: HYSTERECTOMY
     Dosage: 0.25 MG, UNK
  4. LISINOPRIL [Concomitant]
     Indication: HYPERTENSION
     Dosage: 10 MG, DAILY

REACTIONS (1)
  - Glaucoma [Not Recovered/Not Resolved]
